FAERS Safety Report 5479486-X (Version None)
Quarter: 2007Q3

REPORT INFORMATION
  Report Type: 
  Country: None (occurrence: None)
  Receive Date: 20070913
  Receipt Date: 20070207
  Transmission Date: 20080115
  Serious: Yes (Other)
  Sender: FDA-Public Use
  Company Number: 34281

PATIENT
  Age: 93 Year
  Sex: Female

DRUGS (1)
  1. PACLITAXEL [Suspect]
     Dosage: 90MG/IV/WEEKLY
     Route: 042
     Dates: start: 20070131, end: 20070207

REACTIONS (1)
  - EXTRAVASATION [None]
